FAERS Safety Report 8370077-X (Version None)
Quarter: 2012Q2

REPORT INFORMATION
  Report Type: 
  Country: None (occurrence: None)
  Receive Date: 20120518
  Receipt Date: 20120507
  Transmission Date: 20120825
  Serious: Yes (Other)
  Sender: FDA-Public Use
  Company Number: US-JNJFOC-20120512020

PATIENT
  Age: 30 Year
  Sex: Male

DRUGS (9)
  1. ETOPOSIDE [Suspect]
     Indication: EWING'S SARCOMA
     Route: 042
  2. CYCLOPHOSPHAMIDE [Suspect]
     Indication: EWING'S SARCOMA
     Route: 042
  3. VINCRISTINE [Suspect]
     Indication: EWING'S SARCOMA
     Route: 042
  4. PREDNISONE [Suspect]
     Indication: EWING'S SARCOMA
     Route: 048
  5. CYCLOSPORINE [Suspect]
     Indication: PROPHYLAXIS AGAINST GRAFT VERSUS HOST DISEASE
     Route: 065
  6. DOXORUBICIN HCL [Suspect]
     Indication: EWING'S SARCOMA
     Route: 042
  7. FLUDARABINE PHOSPHATE [Suspect]
     Indication: EWING'S SARCOMA
     Route: 042
  8. RADIOTHERAPY [Suspect]
     Indication: EWING'S SARCOMA
     Route: 065
  9. FILGRASTIM [Suspect]
     Indication: EWING'S SARCOMA
     Route: 058

REACTIONS (6)
  - NAUSEA [None]
  - MYALGIA [None]
  - VOMITING [None]
  - FATIGUE [None]
  - CHRONIC GRAFT VERSUS HOST DISEASE [None]
  - OFF LABEL USE [None]
